FAERS Safety Report 7572409-9 (Version None)
Quarter: 2011Q2

REPORT INFORMATION
  Report Type: 
  Country: None (occurrence: None)
  Receive Date: 20110624
  Receipt Date: 20110621
  Transmission Date: 20111010
  Serious: Yes (Death, Hospitalization)
  Sender: FDA-Public Use
  Company Number: PHHY2011US28444

PATIENT
  Sex: Male
  Weight: 28 kg

DRUGS (1)
  1. EXJADE [Suspect]
     Indication: MYELODYSPLASTIC SYNDROME
     Dosage: 750 MG, QD
     Route: 048
     Dates: start: 20091010

REACTIONS (6)
  - DEATH [None]
  - TRANSPLANT REJECTION [None]
  - SHOCK [None]
  - CARDIOMYOPATHY [None]
  - PERICARDIAL EFFUSION [None]
  - HYPOTENSION [None]
